FAERS Safety Report 18215533 (Version 2)
Quarter: 2020Q3

REPORT INFORMATION
  Report Type: Spontaneous
  Country: US (occurrence: US)
  Receive Date: 20200831
  Receipt Date: 20200929
  Transmission Date: 20201103
  Serious: Yes (Other)
  Sender: FDA-Public Use
  Company Number: US-GILEAD-2020-0482853

PATIENT
  Age: 52 Year
  Sex: Male
  Weight: 68.93 kg

DRUGS (19)
  1. ISENTRESS [Concomitant]
     Active Substance: RALTEGRAVIR POTASSIUM
  2. PREZISTA [Concomitant]
     Active Substance: DARUNAVIR ETHANOLATE
  3. POTASSIUM CHLORIDE. [Concomitant]
     Active Substance: POTASSIUM CHLORIDE
  4. FLUOXETINE [Concomitant]
     Active Substance: FLUOXETINE HYDROCHLORIDE
  5. DESCOVY [Concomitant]
     Active Substance: EMTRICITABINE\TENOFOVIR ALAFENAMIDE FUMARATE
  6. TRUVADA [Suspect]
     Active Substance: EMTRICITABINE\TENOFOVIR DISOPROXIL FUMARATE
     Indication: HIV INFECTION
     Dosage: UNK
     Route: 048
     Dates: start: 2005, end: 201909
  7. BIKTARVY [Concomitant]
     Active Substance: BICTEGRAVIR SODIUM\EMTRICITABINE\TENOFOVIR ALAFENAMIDE FUMARATE
  8. NEXIUM [Concomitant]
     Active Substance: ESOMEPRAZOLE MAGNESIUM
  9. KALETRA [Concomitant]
     Active Substance: LOPINAVIR\RITONAVIR
  10. ALLOPURINOL. [Concomitant]
     Active Substance: ALLOPURINOL
  11. COMBIVIR [Concomitant]
     Active Substance: LAMIVUDINE\ZIDOVUDINE
  12. EPIVIR [Concomitant]
     Active Substance: LAMIVUDINE
  13. REYATAZ [Concomitant]
     Active Substance: ATAZANAVIR SULFATE
  14. QUETIAPINE. [Concomitant]
     Active Substance: QUETIAPINE
  15. WARFARIN [Concomitant]
     Active Substance: WARFARIN
  16. MARIJUANA [Concomitant]
     Active Substance: CANNABIS SATIVA SUBSP. INDICA TOP
  17. NIASPAN [Concomitant]
     Active Substance: NIACIN
  18. AMOXICILLIN. [Concomitant]
     Active Substance: AMOXICILLIN
  19. LASIX [Concomitant]
     Active Substance: FUROSEMIDE

REACTIONS (22)
  - Wrist fracture [Recovered/Resolved]
  - Osteoporosis [Not Recovered/Not Resolved]
  - Arthralgia [Unknown]
  - Pain in extremity [Unknown]
  - Mobility decreased [Unknown]
  - Foot fracture [Recovered/Resolved]
  - Anxiety [Unknown]
  - Fear-related avoidance of activities [Unknown]
  - Lower limb fracture [Recovered/Resolved]
  - Osteopenia [Not Recovered/Not Resolved]
  - Depression [Not Recovered/Not Resolved]
  - Emotional distress [Not Recovered/Not Resolved]
  - Pain [Not Recovered/Not Resolved]
  - Fall [Recovered/Resolved]
  - Limb fracture [Unknown]
  - Emotional distress [Unknown]
  - Quality of life decreased [Unknown]
  - Bone density decreased [Not Recovered/Not Resolved]
  - Anhedonia [Unknown]
  - Hip arthroplasty [Unknown]
  - Back pain [Unknown]
  - Loss of personal independence in daily activities [Unknown]

NARRATIVE: CASE EVENT DATE: 2005
